FAERS Safety Report 8340820-4 (Version None)
Quarter: 2012Q2

REPORT INFORMATION
  Report Type: 
  Country: None (occurrence: None)
  Receive Date: 20120507
  Receipt Date: 20120425
  Transmission Date: 20120825
  Serious: Yes (Death, Other)
  Sender: FDA-Public Use
  Company Number: US-ROCHE-1036888

PATIENT
  Sex: Female
  Weight: 93.524 kg

DRUGS (2)
  1. XELODA [Suspect]
     Indication: BREAST CANCER METASTATIC
     Route: 048
     Dates: start: 20101201, end: 20110218
  2. TYKERB [Concomitant]
     Indication: BREAST CANCER METASTATIC
     Route: 048
     Dates: start: 20100524, end: 20110216

REACTIONS (5)
  - HYPOPHAGIA [None]
  - VOMITING [None]
  - NAUSEA [None]
  - RENAL FAILURE ACUTE [None]
  - DEATH [None]
